FAERS Safety Report 19856232 (Version 1)
Quarter: 2021Q3

REPORT INFORMATION
  Report Type: Spontaneous
  Country: US (occurrence: US)
  Receive Date: 20210920
  Receipt Date: 20210920
  Transmission Date: 20211014
  Serious: No
  Sender: FDA-Public Use
  Company Number: US-SA-2021SA305482

PATIENT
  Age: 65 Year
  Sex: Male

DRUGS (2)
  1. LOVENOX [Suspect]
     Active Substance: ENOXAPARIN SODIUM
     Dosage: 40 MG, BID
  2. LOVENOX [Suspect]
     Active Substance: ENOXAPARIN SODIUM
     Indication: THROMBOSIS
     Dosage: 100 MG, BID

REACTIONS (3)
  - Intentional product misuse [Unknown]
  - Stomach mass [Not Recovered/Not Resolved]
  - Expired product administered [Unknown]
